FAERS Safety Report 12447653 (Version 3)
Quarter: 2020Q3

REPORT INFORMATION
  Report Type: Spontaneous
  Country: US (occurrence: US)
  Receive Date: 20160608
  Receipt Date: 20200720
  Transmission Date: 20201102
  Serious: Yes (Hospitalization, Other)
  Sender: FDA-Public Use
  Company Number: US-SA-2016SA105101

PATIENT

DRUGS (6)
  1. METHADONE [Interacting]
     Active Substance: METHADONE HYDROCHLORIDE
     Dosage: UNK UNK,UNK
     Route: 065
  2. ONDANSETRON [Interacting]
     Active Substance: ONDANSETRON
     Dosage: UNK
  3. SERTRALINE [Interacting]
     Active Substance: SERTRALINE HYDROCHLORIDE
     Dosage: UNK
  4. FLUOXETINE [Interacting]
     Active Substance: FLUOXETINE HYDROCHLORIDE
     Dosage: UNK
  5. DIPHENHYDRAMINE. [Suspect]
     Active Substance: DIPHENHYDRAMINE
     Dosage: UNK
  6. AZITHROMYCIN ANHYDROUS. [Interacting]
     Active Substance: AZITHROMYCIN ANHYDROUS
     Dosage: UNK

REACTIONS (19)
  - Unresponsive to stimuli [Unknown]
  - Electrocardiogram ST segment abnormal [Unknown]
  - Torsade de pointes [Unknown]
  - Loss of consciousness [Unknown]
  - Mydriasis [Unknown]
  - Drug withdrawal syndrome [Unknown]
  - Pyrexia [Unknown]
  - Intentional product misuse [Unknown]
  - Electrocardiogram QT prolonged [Unknown]
  - Cardiac arrest [Unknown]
  - Myalgia [Unknown]
  - Nausea [Unknown]
  - Drug interaction [Unknown]
  - Drug withdrawal headache [Unknown]
  - Malaise [Unknown]
  - Pulse absent [Unknown]
  - Medication error [Unknown]
  - Blood pressure decreased [Unknown]
  - Ventricular tachycardia [Unknown]
